FAERS Safety Report 20221410 (Version 1)
Quarter: 2021Q4

REPORT INFORMATION
  Report Type: Spontaneous
  Country: NL (occurrence: NL)
  Receive Date: 20211223
  Receipt Date: 20211223
  Transmission Date: 20220304
  Serious: Yes (Hospitalization)
  Sender: FDA-Public Use
  Company Number: None

PATIENT
  Age: 84 Year
  Sex: Female
  Weight: 63.2 kg

DRUGS (5)
  1. QUETIAPINE [Suspect]
     Active Substance: QUETIAPINE
     Indication: Depression
     Dosage: STRENGTH: 25 MG, 3DD: MORNING 2.5 ; AFTERNOON 2 ; EVENING 1
     Dates: start: 202108
  2. POLYETHYLENE GLYCOL 3350 [Concomitant]
     Active Substance: POLYETHYLENE GLYCOL 3350
     Dosage: POWDER FOR ORAL SOLUTION, MACROGOL/ SALTS
  3. CALCIUM CARBONATE\CHOLECALCIFEROL [Concomitant]
     Active Substance: CALCIUM CARBONATE\CHOLECALCIFEROL
     Dosage: STRENGTH: 1.25 G (GRAMS)/800 UNITS(500MG CA), 500MG/800IU
  4. MELATONIN [Concomitant]
     Active Substance: MELATONIN
     Dosage: STRENGTH: 3 MG
  5. ACETAMINOPHEN [Concomitant]
     Active Substance: ACETAMINOPHEN
     Dosage: STRENGTH: 500 MG

REACTIONS (6)
  - Confusional state [Recovered/Resolved]
  - Movement disorder [Recovered/Resolved]
  - Hyponatraemia [Recovered/Resolved]
  - Musculoskeletal stiffness [Recovered/Resolved]
  - Urinary incontinence [Recovered/Resolved]
  - Anal incontinence [Recovered/Resolved]

NARRATIVE: CASE EVENT DATE: 20211115
